FAERS Safety Report 8785217 (Version 1)
Quarter: 2012Q4

REPORT INFORMATION
  Report Type: Spontaneous
  Country: CN (occurrence: None)
  Receive Date: 20120831
  Receipt Date: 20120831
  Transmission Date: 20130627
  Serious: Yes (Hospitalization, Other)
  Sender: FDA-Public Use
  Company Number: VAL_00816_2012

PATIENT
  Sex: Female
  Weight: 65 kg

DRUGS (7)
  1. ROCALTROL [Suspect]
     Indication: BONE PAIN
     Dates: start: 2004
  2. ROCALTROL [Suspect]
     Indication: BONE PAIN
     Route: 048
  3. CELLCEPT [Suspect]
     Indication: RENAL TRANSPLANT
     Dosage: 750 MG IN THE MORNING AND 500MG IN THE EVENING ORAL
     Route: 048
     Dates: end: 201206
  4. CELLCEPT [Suspect]
     Indication: RENAL TRANSPLANT
     Route: 048
  5. CELLCEPT [Suspect]
     Indication: RENAL TRANSPLANT
     Dates: start: 20020419
  6. NEORAL [Suspect]
     Indication: RENAL TRANSPLANT
     Route: 048
     Dates: start: 20120419
  7. PREDNISONE [Suspect]
     Indication: RENAL TRANSPLANT
     Route: 048
     Dates: start: 20120419, end: 2004

REACTIONS (3)
  - Bone pain [None]
  - Breast cancer [None]
  - White blood cell count decreased [None]
